FAERS Safety Report 8876226 (Version 1)
Quarter: 2012Q4

REPORT INFORMATION
  Report Type: Report from Study
  Country: CA (occurrence: CA)
  Receive Date: 20121023
  Receipt Date: 20121023
  Transmission Date: 20130627
  Serious: Yes (Other)
  Sender: FDA-Public Use
  Company Number: CA-JNJFOC-20121010295

PATIENT
  Sex: Male
  Weight: 107.5 kg

DRUGS (2)
  1. STELARA [Suspect]
     Indication: PSORIASIS
     Route: 058
     Dates: start: 2012
  2. STELARA [Suspect]
     Indication: PSORIASIS
     Route: 058
     Dates: start: 201110

REACTIONS (1)
  - Weight increased [Unknown]
